FAERS Safety Report 14468218 (Version 1)
Quarter: 2018Q1

REPORT INFORMATION
  Report Type: Spontaneous
  Country: US (occurrence: US)
  Receive Date: 20180131
  Receipt Date: 20180131
  Transmission Date: 20180509
  Serious: Yes (Hospitalization)
  Sender: FDA-Public Use
  Company Number: US-TAIHO ONCOLOGY INC-EU-2018-00092

PATIENT
  Sex: Female

DRUGS (13)
  1. PHENERGAN [Concomitant]
     Active Substance: PROMETHAZINE HYDROCHLORIDE
     Dosage: NI
  2. LONSURF [Suspect]
     Active Substance: TIPIRACIL HYDROCHLORIDE\TRIFLURIDINE
     Route: 048
     Dates: start: 201703, end: 201709
  3. FLUOCINOLONE ACETONIDE. [Concomitant]
     Active Substance: FLUOCINOLONE ACETONIDE
     Dosage: NI
  4. NORCO [Concomitant]
     Active Substance: ACETAMINOPHEN\HYDROCODONE BITARTRATE
     Dosage: NI
  5. ELIDEL [Concomitant]
     Active Substance: PIMECROLIMUS
     Dosage: NI
  6. DOCUSATE [Concomitant]
     Active Substance: DOCUSATE
     Dosage: NI
  7. ATIVAN [Concomitant]
     Active Substance: LORAZEPAM
     Dosage: NI
  8. COUMADIN [Concomitant]
     Active Substance: WARFARIN SODIUM
     Dosage: NI
  9. AMITIZA [Concomitant]
     Active Substance: LUBIPROSTONE
     Dosage: NI
  10. CAPECITABINE. [Concomitant]
     Active Substance: CAPECITABINE
     Dosage: NI
  11. FUROSEMIDE. [Concomitant]
     Active Substance: FUROSEMIDE
     Dosage: NI
  12. DULOXETINE. [Concomitant]
     Active Substance: DULOXETINE
     Dosage: NI
  13. ZOFRAN [Concomitant]
     Active Substance: ONDANSETRON HYDROCHLORIDE
     Dosage: NI

REACTIONS (2)
  - Anaemia [Unknown]
  - Deep vein thrombosis [Unknown]

NARRATIVE: CASE EVENT DATE: 2017
